FAERS Safety Report 9715330 (Version 1)
Quarter: 2013Q4

REPORT INFORMATION
  Report Type: Report from Study
  Country: ES (occurrence: ES)
  Receive Date: 20131127
  Receipt Date: 20131127
  Transmission Date: 20140711
  Serious: Yes (Other)
  Sender: FDA-Public Use
  Company Number: ES-ROCHE-1306590

PATIENT
  Age: 62 Year
  Sex: 0

DRUGS (5)
  1. MYCOPHENOLATE MOFETIL [Suspect]
     Indication: IMMUNOSUPPRESSION
     Route: 065
  2. PREDNISONE [Concomitant]
     Route: 065
  3. TACROLIMUS [Concomitant]
  4. RITUXIMAB [Concomitant]
     Route: 065
  5. CICLOSPORIN [Concomitant]
     Route: 065

REACTIONS (1)
  - Kidney transplant rejection [Unknown]
